FAERS Safety Report 11608420 (Version 1)
Quarter: 2015Q4

REPORT INFORMATION
  Report Type: Spontaneous
  Country: TR (occurrence: TR)
  Receive Date: 20151007
  Receipt Date: 20151007
  Transmission Date: 20160304
  Serious: Yes (Other)
  Sender: FDA-Public Use
  Company Number: TR-MYLANLABS-2015M1033468

PATIENT

DRUGS (3)
  1. PREDNISOLONE. [Suspect]
     Active Substance: PREDNISOLONE
     Indication: MEVALONIC ACIDURIA
     Dosage: 2 MG/KG, QD
  2. IBUPROFEN. [Suspect]
     Active Substance: IBUPROFEN
     Indication: MEVALONIC ACIDURIA
  3. CANAKINUMAB [Suspect]
     Active Substance: CANAKINUMAB
     Indication: MEVALONIC ACIDURIA
     Dosage: UNK

REACTIONS (1)
  - Drug ineffective [Unknown]
